FAERS Safety Report 23976003 (Version 1)
Quarter: 2024Q2

REPORT INFORMATION
  Report Type: Spontaneous
  Country: ZA (occurrence: ZA)
  Receive Date: 20240614
  Receipt Date: 20240614
  Transmission Date: 20240716
  Serious: Yes (Hospitalization)
  Sender: FDA-Public Use
  Company Number: ZA-MACLEODS PHARMA-MAC2024047628

PATIENT
  Age: 64 Year
  Sex: Female

DRUGS (7)
  1. HYDROCHLOROTHIAZIDE\VALSARTAN [Suspect]
     Active Substance: HYDROCHLOROTHIAZIDE\VALSARTAN
     Indication: Hypertension
     Dosage: TAKE ONE TABLET DAILY,(NIOSAR CO)
     Route: 048
  2. AMLODIPINE BESYLATE [Suspect]
     Active Substance: AMLODIPINE BESYLATE
     Indication: Hypertension
     Dosage: TAKE  ONE TABLET  DAILY
     Route: 048
  3. AMMONIUM CHLORIDE\SODIUM CITRATE\TERBUTALINE SULFATE [Suspect]
     Active Substance: AMMONIUM CHLORIDE\SODIUM CITRATE\TERBUTALINE SULFATE
     Indication: Product used for unknown indication
     Dosage: TWO MEASURES THREE TIMES A DAY
     Route: 048
  4. ACETAMINOPHEN\CAFFEINE\CODEINE\DOXYLAMINE [Suspect]
     Active Substance: ACETAMINOPHEN\CAFFEINE\CODEINE\DOXYLAMINE
     Indication: Product used for unknown indication
     Dosage: TAKE 1-2 TABLET THREE TIMES A DAY
     Route: 048
  5. AMLODIPINE\HYDROCHLOROTHIAZIDE\VALSARTAN [Suspect]
     Active Substance: AMLODIPINE\HYDROCHLOROTHIAZIDE\VALSARTAN
     Indication: Hypertension
     Dosage: TAKE  ONE TABLET  DAILY
     Route: 048
  6. MONTELUKAST SODIUM [Suspect]
     Active Substance: MONTELUKAST SODIUM
     Indication: Asthma
     Route: 048
  7. LORATADINE [Suspect]
     Active Substance: LORATADINE
     Indication: Hypersensitivity
     Route: 048

REACTIONS (1)
  - Blood pressure increased [Unknown]
